FAERS Safety Report 15608144 (Version 2)
Quarter: 2018Q4

REPORT INFORMATION
  Report Type: Spontaneous
  Country: ES (occurrence: ES)
  Receive Date: 20181112
  Receipt Date: 20181219
  Transmission Date: 20190205
  Serious: Yes (Death, Hospitalization)
  Sender: FDA-Public Use
  Company Number: ES-PFIZER INC-2018459442

PATIENT
  Age: 63 Year
  Sex: Female
  Weight: 79 kg

DRUGS (5)
  1. ACID ZOLEDRONIC ACCORD [Concomitant]
     Dosage: UNK
     Route: 042
  2. CALODIS [Concomitant]
     Dosage: 1 DF, 1X/DAY
     Route: 048
  3. FULVESTRANT TEVA [Suspect]
     Active Substance: FULVESTRANT
     Indication: BREAST CANCER
     Dosage: 250 MG, 1X/DAY
     Route: 030
     Dates: start: 20180829, end: 20180912
  4. IBRANCE [Suspect]
     Active Substance: PALBOCICLIB
     Indication: BREAST CANCER
     Dosage: 125 MG, 1X/DAY
     Route: 048
     Dates: start: 20180829, end: 20180912
  5. LETROZOL ACCORD [Concomitant]
     Active Substance: LETROZOLE

REACTIONS (1)
  - Pancytopenia [Fatal]

NARRATIVE: CASE EVENT DATE: 20180912
